FAERS Safety Report 16201240 (Version 2)
Quarter: 2019Q2

REPORT INFORMATION
  Report Type: Spontaneous
  Country: CN (occurrence: CN)
  Receive Date: 20190416
  Receipt Date: 20190422
  Transmission Date: 20190711
  Serious: Yes (Life-Threatening, Hospitalization, Other)
  Sender: FDA-Public Use
  Company Number: CN-SA-2019SA104642

PATIENT
  Age: 86 Year
  Sex: Female

DRUGS (1)
  1. INDAPAMIDE. [Suspect]
     Active Substance: INDAPAMIDE
     Indication: HYPERTENSION
     Dosage: LONG TERM USE
     Route: 065

REACTIONS (19)
  - Osmotic demyelination syndrome [Recovering/Resolving]
  - Coma [Recovered/Resolved]
  - Pupillary reflex impaired [Recovering/Resolving]
  - Hypertension [Unknown]
  - Urinary incontinence [Unknown]
  - Nuclear magnetic resonance imaging brain abnormal [Recovering/Resolving]
  - Hypokalaemia [Recovered/Resolved]
  - Eye movement disorder [Recovering/Resolving]
  - Hyporeflexia [Recovering/Resolving]
  - Lumbar spinal stenosis [Recovering/Resolving]
  - Dysarthria [Recovering/Resolving]
  - Hyponatraemia [Recovered/Resolved]
  - Anal incontinence [Unknown]
  - Somnolence [Not Recovered/Not Resolved]
  - Back pain [Recovering/Resolving]
  - Extensor plantar response [Recovering/Resolving]
  - Blood pressure decreased [Recovering/Resolving]
  - Muscular weakness [Recovering/Resolving]
  - Heart rate increased [Recovering/Resolving]

NARRATIVE: CASE EVENT DATE: 20180321
